FAERS Safety Report 4405914-4 (Version None)
Quarter: 2004Q3

REPORT INFORMATION
  Report Type: 
  Country: None (occurrence: None)
  Receive Date: 20040723
  Receipt Date: 20040128
  Transmission Date: 20050211
  Serious: Yes (Hospitalization)
  Sender: FDA-Public Use
  Company Number: US-GLAXOSMITHKLINE-A0496719A

PATIENT
  Age: 68 Year
  Sex: Male

DRUGS (22)
  1. AVANDIA [Suspect]
     Dosage: 8MG PER DAY
     Route: 048
     Dates: start: 20010112, end: 20021201
  2. AMARYL [Concomitant]
     Dosage: 4MG PER DAY
     Route: 048
  3. ATACAND HCT [Concomitant]
     Dosage: 1TAB PER DAY
     Route: 048
  4. NASONEX [Concomitant]
     Route: 045
  5. CLONIDINE HCL [Concomitant]
     Dosage: .1MG TWICE PER DAY
     Route: 048
  6. TIAZAC [Concomitant]
     Dosage: 300MG PER DAY
     Route: 048
  7. CELEXA [Concomitant]
     Dosage: 20MG PER DAY
     Route: 048
  8. ALPRAZOLAM [Concomitant]
     Dosage: .5MG AS REQUIRED
     Route: 048
  9. COVERA-HS [Concomitant]
     Dosage: 240MG AT NIGHT
     Route: 048
  10. DOXYCYCLINE [Concomitant]
     Dosage: 100MG TWICE PER DAY
     Route: 048
  11. GUAIFENEX [Concomitant]
     Indication: NASAL CONGESTION
     Route: 048
  12. ALTACE [Concomitant]
     Dosage: 10MG TWICE PER DAY
     Route: 048
  13. PROPOXYPHENE NAPSYLATE + APAP [Concomitant]
     Indication: PAIN
     Route: 048
  14. ALOCRIL [Concomitant]
  15. OMNICEF [Concomitant]
     Dosage: 300MG TWICE PER DAY
     Route: 048
  16. LAMISIL [Concomitant]
     Indication: ONYCHOMYCOSIS
  17. VERELAN [Concomitant]
  18. HYZAAR [Concomitant]
  19. MULTIVITAMIN [Concomitant]
  20. VITAMIN C [Concomitant]
  21. ALTACE [Concomitant]
     Indication: HYPERTENSION
     Dosage: 10MG PER DAY
     Route: 048
  22. FUROSEMIDE [Concomitant]
     Indication: DRUG USE FOR UNKNOWN INDICATION
     Dosage: 10MG PER DAY
     Route: 048

REACTIONS (5)
  - CARDIAC FAILURE CONGESTIVE [None]
  - DYSPNOEA [None]
  - HYPERHIDROSIS [None]
  - OEDEMA [None]
  - PULMONARY OEDEMA [None]
